FAERS Safety Report 4483833-5 (Version None)
Quarter: 2004Q4

REPORT INFORMATION
  Report Type: 
  Country: None (occurrence: None)
  Receive Date: 20041025
  Receipt Date: 20041014
  Transmission Date: 20050328
  Serious: Yes (Death)
  Sender: FDA-Public Use
  Company Number: BR-BRISTOL-MYERS SQUIBB COMPANY-12734786

PATIENT
  Age: 48 Year
  Sex: Female

DRUGS (2)
  1. RUBRANOVA INJ [Suspect]
     Indication: BACK PAIN
     Route: 030
  2. RUBRANOVA INJ [Suspect]
     Indication: PAIN IN EXTREMITY
     Route: 030

REACTIONS (1)
  - DEATH [None]
